FAERS Safety Report 9686996 (Version 1)
Quarter: 2013Q4

REPORT INFORMATION
  Report Type: Spontaneous
  Country: US (occurrence: US)
  Receive Date: 20131113
  Receipt Date: 20131113
  Transmission Date: 20140711
  Serious: No
  Sender: FDA-Public Use
  Company Number: US-ROXANE LABORATORIES, INC.-2013-RO-01831RO

PATIENT
  Age: 70 Year
  Sex: Female

DRUGS (2)
  1. EXEMESTANE [Suspect]
  2. AFINITOR [Suspect]

REACTIONS (2)
  - Stomatitis [Unknown]
  - Candida infection [Unknown]
